FAERS Safety Report 6654892-6 (Version None)
Quarter: 2010Q1

REPORT INFORMATION
  Report Type: 
  Country: None (occurrence: None)
  Receive Date: 20100329
  Receipt Date: 20100317
  Transmission Date: 20100710
  Serious: Yes (Hospitalization)
  Sender: FDA-Public Use
  Company Number: 2010BI004300

PATIENT
  Age: 46 Year
  Sex: Female
  Weight: 64 kg

DRUGS (6)
  1. TYSABRI [Suspect]
     Indication: MULTIPLE SCLEROSIS
     Route: 042
     Dates: start: 20090522, end: 20091201
  2. TYSABRI [Suspect]
     Indication: CROHN'S DISEASE
     Route: 042
     Dates: start: 20090522, end: 20091201
  3. TYSABRI [Suspect]
     Route: 042
     Dates: start: 20100305
  4. TYSABRI [Suspect]
     Route: 042
     Dates: start: 20100305
  5. NEURONTIN [Concomitant]
     Indication: ARTHRALGIA
  6. LYRICA [Concomitant]
     Indication: ARTHRALGIA

REACTIONS (10)
  - BILE DUCT STONE [None]
  - BLOOD PRESSURE DECREASED [None]
  - CHOLELITHIASIS [None]
  - CROHN'S DISEASE [None]
  - DEHYDRATION [None]
  - DEPRESSED LEVEL OF CONSCIOUSNESS [None]
  - INFLUENZA [None]
  - MALAISE [None]
  - MULTIPLE SCLEROSIS RELAPSE [None]
  - WEIGHT DECREASED [None]
